FAERS Safety Report 19918350 (Version 8)
Quarter: 2022Q3

REPORT INFORMATION
  Report Type: Report from Study
  Country: NL (occurrence: NL)
  Receive Date: 20211005
  Receipt Date: 20220719
  Transmission Date: 20221027
  Serious: Yes (Other)
  Sender: FDA-Public Use
  Company Number: NL-ABBVIE-21K-114-4095073-00

PATIENT
  Age: 73 Year
  Sex: Male

DRUGS (6)
  1. CARBIDOPA\LEVODOPA [Suspect]
     Active Substance: CARBIDOPA\LEVODOPA
     Indication: Parkinson^s disease
     Dosage: MD 10 ML CD 3.4 ML/H ED 2.0 ML?DUODOPA GEL 20 MG/ML, 5 MG/ML
     Route: 050
     Dates: start: 20210913, end: 202109
  2. CARBIDOPA\LEVODOPA [Suspect]
     Active Substance: CARBIDOPA\LEVODOPA
     Dosage: MD 15 ML CD 3.7 ML/H ED 2.0 ML
     Route: 050
     Dates: start: 202109, end: 2021
  3. CARBIDOPA\LEVODOPA [Suspect]
     Active Substance: CARBIDOPA\LEVODOPA
     Dosage: MD 15.0 ML, CD 4.0 ML/H, ED 2.0 ML
     Route: 050
     Dates: start: 2021, end: 2021
  4. CARBIDOPA\LEVODOPA [Suspect]
     Active Substance: CARBIDOPA\LEVODOPA
     Dosage: MD 15.0 ML, CD 4.3 ML/H, ED 2.0 ML
     Route: 050
     Dates: start: 2021
  5. POLYETHYLENE GLYCOLS [Suspect]
     Active Substance: POLYETHYLENE GLYCOLS
     Indication: Bowel movement irregularity
     Route: 065
  6. BEPANTHEN [Concomitant]
     Indication: Product used for unknown indication

REACTIONS (30)
  - Diaphragmatic rupture [Unknown]
  - Bradyphrenia [Not Recovered/Not Resolved]
  - Speech disorder [Not Recovered/Not Resolved]
  - Fibroma [Unknown]
  - Dyschezia [Not Recovered/Not Resolved]
  - Muscle rigidity [Not Recovered/Not Resolved]
  - Reduced facial expression [Not Recovered/Not Resolved]
  - Medical device site swelling [Recovered/Resolved]
  - Tremor [Not Recovered/Not Resolved]
  - Muscle spasms [Not Recovered/Not Resolved]
  - Diarrhoea [Recovered/Resolved]
  - Fatigue [Recovering/Resolving]
  - Gait disturbance [Not Recovered/Not Resolved]
  - Dyskinesia [Recovering/Resolving]
  - Parkinson^s disease [Recovered/Resolved]
  - Therapeutic response shortened [Not Recovered/Not Resolved]
  - Freezing phenomenon [Not Recovered/Not Resolved]
  - Constipation [Recovered/Resolved]
  - Stoma site pain [Not Recovered/Not Resolved]
  - Stoma site discharge [Unknown]
  - On and off phenomenon [Not Recovered/Not Resolved]
  - Dyspepsia [Recovering/Resolving]
  - Unevaluable event [Recovered/Resolved]
  - Unevaluable event [Not Recovered/Not Resolved]
  - Unevaluable event [Recovered/Resolved]
  - Middle insomnia [Recovered/Resolved]
  - Stoma site erythema [Recovered/Resolved]
  - Constipation [Recovered/Resolved]
  - Diarrhoea [Recovered/Resolved]
  - Stoma site inflammation [Recovered/Resolved]

NARRATIVE: CASE EVENT DATE: 20210101
